FAERS Safety Report 9668055 (Version 2)
Quarter: 2013Q4

REPORT INFORMATION
  Report Type: Spontaneous
  Country: TW (occurrence: TW)
  Receive Date: 20131104
  Receipt Date: 20131217
  Transmission Date: 20140711
  Serious: Yes (Death, Life-Threatening)
  Sender: FDA-Public Use
  Company Number: TW-OTSUKA-US-2013-12041

PATIENT
  Age: 61 Year
  Sex: Male

DRUGS (2)
  1. BUSULFEX [Suspect]
     Indication: STEM CELL TRANSPLANT
     Dosage: 3.2 MG/KG, UNK
     Route: 042
     Dates: start: 20091103, end: 20091104
  2. FLUDARABINE [Suspect]
     Indication: STEM CELL TRANSPLANT
     Dosage: 50 MG/M2, UNK
     Dates: start: 20091103, end: 20091107

REACTIONS (1)
  - Post transplant lymphoproliferative disorder [Fatal]
